FAERS Safety Report 9312715 (Version 3)
Quarter: 2013Q2

REPORT INFORMATION
  Report Type: Report from Study
  Country: US (occurrence: US)
  Receive Date: 20130528
  Receipt Date: 20130617
  Transmission Date: 20140414
  Serious: Yes (Hospitalization)
  Sender: FDA-Public Use
  Company Number: US-ACTELION-A-NJ2013-83618

PATIENT
  Age: 64 Year
  Sex: Male

DRUGS (5)
  1. TRACLEER [Suspect]
     Indication: PULMONARY ARTERIAL HYPERTENSION
     Dosage: UNK
     Route: 048
  2. TRACLEER [Suspect]
     Dosage: UNK
     Route: 048
     Dates: start: 2013
  3. VENTAVIS [Suspect]
     Indication: PULMONARY ARTERIAL HYPERTENSION
     Dosage: UNK
     Route: 055
  4. VENTAVIS [Suspect]
     Dosage: UNK
     Route: 055
  5. COUMADIN [Concomitant]

REACTIONS (3)
  - Transient ischaemic attack [Recovering/Resolving]
  - Cerebrovascular accident [Unknown]
  - Drug dose omission [Unknown]
